FAERS Safety Report 24791835 (Version 1)
Quarter: 2024Q4

REPORT INFORMATION
  Report Type: Spontaneous
  Country: BE (occurrence: US)
  Receive Date: 20241231
  Receipt Date: 20241231
  Transmission Date: 20250114
  Serious: Yes (Hospitalization)
  Sender: ABBVIE
  Company Number: BE-ABBVIE-6067853

PATIENT
  Age: 32 Year
  Sex: Female

DRUGS (1)
  1. HUMIRA [Suspect]
     Active Substance: ADALIMUMAB
     Indication: Product used for unknown indication
     Route: 058
     Dates: start: 202203

REACTIONS (12)
  - Dyspnoea [Unknown]
  - Dizziness [Unknown]
  - Palpitations [Unknown]
  - Migraine [Unknown]
  - Vision blurred [Unknown]
  - Anxiety [Unknown]
  - Weight decreased [Unknown]
  - Stomatitis [Unknown]
  - Night sweats [Unknown]
  - Muscle atrophy [Unknown]
  - Insomnia [Unknown]
  - Fatigue [Unknown]
